FAERS Safety Report 14618427 (Version 1)
Quarter: 2018Q1

REPORT INFORMATION
  Report Type: Spontaneous
  Country: DE (occurrence: DE)
  Receive Date: 20180309
  Receipt Date: 20180309
  Transmission Date: 20180509
  Serious: Yes (Hospitalization)
  Sender: FDA-Public Use
  Company Number: US-ASTRAZENECA-2018SE29618

PATIENT
  Age: 224 Day
  Sex: Male

DRUGS (7)
  1. SYNAGIS [Suspect]
     Active Substance: PALIVIZUMAB
     Indication: PREMATURE BABY
     Dosage: 1 ML TO 1.4 ML, EVERY FOUR WEEKS
     Route: 030
     Dates: end: 20180215
  2. SYNAGIS [Suspect]
     Active Substance: PALIVIZUMAB
     Indication: SMALL FOR DATES BABY
     Dosage: 1 ML TO 1.4 ML, EVERY FOUR WEEKS
     Route: 030
     Dates: start: 20171107
  3. SYNAGIS [Suspect]
     Active Substance: PALIVIZUMAB
     Indication: PREMATURE BABY
     Dosage: 1 ML TO 1.4 ML, EVERY FOUR WEEKS
     Route: 030
     Dates: start: 20171107
  4. SYNAGIS [Suspect]
     Active Substance: PALIVIZUMAB
     Indication: SMALL FOR DATES BABY
     Dosage: 1 ML TO 1.4 ML, EVERY FOUR WEEKS
     Route: 030
     Dates: end: 20180215
  5. VIGANTOL OIL [Concomitant]
     Indication: PRODUCT USED FOR UNKNOWN INDICATION
     Route: 048
     Dates: start: 20180215
  6. PREVENAR [Concomitant]
     Active Substance: PNEUMOCOCCAL 7-VALENT CONJUGATE VACCINE (DIPHTHERIA CRM197 PROTEIN)
     Indication: PROPHYLAXIS
     Dosage: 3 INJECTIONS
     Route: 050
  7. VIGANTOLETTEN [Concomitant]
     Active Substance: CHOLECALCIFEROL
     Indication: VITAMIN SUPPLEMENTATION
     Route: 048
     Dates: start: 20170714

REACTIONS (6)
  - Rash [Not Recovered/Not Resolved]
  - Infection [Unknown]
  - Dermatitis allergic [Recovering/Resolving]
  - Food allergy [Unknown]
  - Urticaria [Recovering/Resolving]
  - Body temperature increased [Not Recovered/Not Resolved]

NARRATIVE: CASE EVENT DATE: 20180215
